FAERS Safety Report 5050540-X (Version None)
Quarter: 2006Q3

REPORT INFORMATION
  Report Type: 
  Country: None (occurrence: None)
  Receive Date: 20060707
  Receipt Date: 20060629
  Transmission Date: 20061208
  Serious: Yes (Other)
  Sender: FDA-Public Use
  Company Number: 6023926

PATIENT
  Age: 67 Year
  Sex: Female

DRUGS (1)
  1. CONCOR COR           (BISOPROLOL FUMARATE) [Suspect]
     Indication: HYPERKINETIC HEART SYNDROME
     Dosage: 1 DOSAGE FORMS (1 DOSAGE FORMS,1 IN 1 D)
     Route: 048
     Dates: start: 20060401

REACTIONS (2)
  - NIGHTMARE [None]
  - PSYCHOTIC DISORDER [None]
